FAERS Safety Report 6817374-4 (Version None)
Quarter: 2010Q2

REPORT INFORMATION
  Report Type: 
  Country: None (occurrence: None)
  Receive Date: 20100630
  Receipt Date: 20100618
  Transmission Date: 20101027
  Serious: Yes (Hospitalization)
  Sender: FDA-Public Use
  Company Number: 012822

PATIENT
  Sex: Female

DRUGS (4)
  1. CIMZIA [Suspect]
     Indication: RHEUMATOID ARTHRITIS
     Dosage: (400 MG 1X/2 WEEKS SUBCUTANEOUS)
     Route: 058
     Dates: start: 20100510, end: 20100521
  2. PLAQUENIL [Concomitant]
  3. PREDNISONE [Concomitant]
  4. STEMETIL /00013301/ [Concomitant]

REACTIONS (3)
  - LACERATION [None]
  - PAIN IN EXTREMITY [None]
  - STREPTOCOCCAL INFECTION [None]
